FAERS Safety Report 18843124 (Version 2)
Quarter: 2021Q1

REPORT INFORMATION
  Report Type: Spontaneous
  Country: US (occurrence: US)
  Receive Date: 20210203
  Receipt Date: 20210218
  Transmission Date: 20210419
  Serious: Yes (Other)
  Sender: FDA-Public Use
  Company Number: US-009507513-2102USA000535

PATIENT
  Sex: Female
  Weight: 108.39 kg

DRUGS (1)
  1. NEXPLANON [Suspect]
     Active Substance: ETONOGESTREL
     Dosage: 1 IMPLANT (1 DOSAGE FORM)
     Route: 059
     Dates: start: 20201117, end: 20210128

REACTIONS (3)
  - Device dislocation [Recovered/Resolved]
  - Implant site fibrosis [Unknown]
  - Device kink [Recovered/Resolved]
